FAERS Safety Report 6556177-5 (Version None)
Quarter: 2010Q1

REPORT INFORMATION
  Report Type: 
  Country: None (occurrence: None)
  Receive Date: 20100128
  Receipt Date: 20090618
  Transmission Date: 20100710
  Serious: Yes (Other)
  Sender: FDA-Public Use
  Company Number: US-TEVA-197894USA

PATIENT
  Sex: Female

DRUGS (3)
  1. COPAXONE [Suspect]
     Indication: MULTIPLE SCLEROSIS
     Route: 058
     Dates: start: 19981028, end: 20040601
  2. INTERFERON BETA [Suspect]
     Indication: MULTIPLE SCLEROSIS
  3. INTERFERON BETA-1A [Suspect]
     Indication: MULTIPLE SCLEROSIS

REACTIONS (4)
  - BREAST CANCER [None]
  - CONVULSION [None]
  - MUSCLE SPASMS [None]
  - UTERINE LEIOMYOMA [None]
